FAERS Safety Report 12527324 (Version 1)
Quarter: 2016Q3

REPORT INFORMATION
  Report Type: Spontaneous
  Country: US (occurrence: US)
  Receive Date: 20160705
  Receipt Date: 20160705
  Transmission Date: 20161109
  Serious: Yes (Other)
  Sender: FDA-Public Use
  Company Number: US-ELI_LILLY_AND_COMPANY-US201606009327

PATIENT
  Age: 73 Year
  Sex: Female

DRUGS (1)
  1. ZYPREXA INTRAMUSCULAR [Suspect]
     Active Substance: OLANZAPINE
     Indication: SCHIZOPHRENIA
     Dosage: UNK, SINGLE
     Route: 030
     Dates: start: 201605, end: 201605

REACTIONS (2)
  - Blood pressure immeasurable [Unknown]
  - Constipation [Recovered/Resolved]

NARRATIVE: CASE EVENT DATE: 201605
